FAERS Safety Report 12811168 (Version 2)
Quarter: 2016Q4

REPORT INFORMATION
  Report Type: Spontaneous
  Country: US (occurrence: US)
  Receive Date: 20161005
  Receipt Date: 20161230
  Transmission Date: 20170207
  Serious: Yes (Hospitalization, Other)
  Sender: FDA-Public Use
  Company Number: US-009507513-1203USA02002

PATIENT
  Sex: Female

DRUGS (5)
  1. ACTONEL [Suspect]
     Active Substance: RISEDRONATE SODIUM
     Indication: OSTEOPOROSIS
     Dosage: 35 MG, UNK
     Route: 048
     Dates: start: 2004
  2. ACTONEL [Suspect]
     Active Substance: RISEDRONATE SODIUM
     Dosage: 5 MG, QW
  3. FOSAMAX [Suspect]
     Active Substance: ALENDRONATE SODIUM
     Indication: OSTEOPOROSIS
     Dosage: 70 MG, QW
     Route: 048
     Dates: start: 1995, end: 200807
  4. HORMONES (UNSPECIFIED) [Concomitant]
     Active Substance: UNSPECIFIED INGREDIENT
     Dosage: UNK
     Route: 065
     Dates: start: 1994, end: 2005
  5. ALENDRONATE SODIUM. [Suspect]
     Active Substance: ALENDRONATE SODIUM
     Indication: OSTEOPOROSIS
     Dosage: 70 MG, QW
     Route: 048
     Dates: start: 20080715, end: 200901

REACTIONS (31)
  - Haemorrhagic anaemia [Unknown]
  - Depression [Unknown]
  - Aortic valve incompetence [Unknown]
  - Femur fracture [Unknown]
  - Oral surgery [Unknown]
  - Hyperthyroidism [Unknown]
  - Jaw fracture [Unknown]
  - Blood cholesterol increased [Unknown]
  - Adverse event [Unknown]
  - Ocular neoplasm [Unknown]
  - Wrist surgery [Unknown]
  - Hand fracture [Recovering/Resolving]
  - Ligament sprain [Unknown]
  - Low turnover osteopathy [Unknown]
  - Tooth disorder [Unknown]
  - Endodontic procedure [Unknown]
  - Gastrooesophageal reflux disease [Unknown]
  - Drug hypersensitivity [Unknown]
  - Polyarthritis [Unknown]
  - Osteoarthritis [Unknown]
  - Transfusion [Unknown]
  - Contusion [Unknown]
  - Bone trimming [Unknown]
  - Pulmonary mass [Unknown]
  - Hand fracture [Unknown]
  - Heart valve incompetence [Unknown]
  - Hypothyroidism [Unknown]
  - Femur fracture [Recovering/Resolving]
  - Hypertension [Unknown]
  - Hypomagnesaemia [Unknown]
  - Device failure [Recovered/Resolved]

NARRATIVE: CASE EVENT DATE: 20040719
